FAERS Safety Report 8616703-9 (Version None)
Quarter: 2012Q3

REPORT INFORMATION
  Report Type: 
  Country: None (occurrence: None)
  Receive Date: 20120823
  Receipt Date: 20120817
  Transmission Date: 20120928
  Serious: Yes (Hospitalization, Other)
  Sender: FDA-Public Use
  Company Number: GB-ROCHE-1105379

PATIENT
  Sex: Female

DRUGS (10)
  1. LOSEC (UNITED KINGDOM) [Concomitant]
  2. FUROSEMIDE [Concomitant]
  3. IRBESARTAN [Concomitant]
  4. SIMVASTATIN [Concomitant]
  5. ASPIRIN [Concomitant]
  6. ISMO [Concomitant]
  7. NITROGLYCERIN [Concomitant]
  8. LUCENTIS [Suspect]
     Indication: PRODUCT USED FOR UNKNOWN INDICATION
     Route: 050
  9. BISOPROLOL FUMARATE [Concomitant]
  10. CLOPIDEGREL [Concomitant]

REACTIONS (2)
  - CHOLECYSTITIS [None]
  - INFECTION [None]
